FAERS Safety Report 13629512 (Version 1)
Quarter: 2017Q2

REPORT INFORMATION
  Report Type: Spontaneous
  Country: US (occurrence: US)
  Receive Date: 20170531
  Receipt Date: 20170531
  Transmission Date: 20170830
  Serious: No
  Sender: FDA-Public Use
  Company Number: US-ASTELLAS-1203492

PATIENT
  Age: 82 Year
  Sex: Male

DRUGS (2)
  1. TARCEVA [Suspect]
     Active Substance: ERLOTINIB HYDROCHLORIDE
     Indication: PRODUCT USED FOR UNKNOWN INDICATION
     Route: 048
  2. TARCEVA [Suspect]
     Active Substance: ERLOTINIB HYDROCHLORIDE
     Route: 065

REACTIONS (6)
  - Cellulitis [Recovered/Resolved]
  - Rash [Recovered/Resolved]
  - Herpes zoster [Unknown]
  - Skin infection [Recovered/Resolved]
  - Furuncle [Unknown]
  - Rash pustular [Unknown]

NARRATIVE: CASE EVENT DATE: 20120814
